FAERS Safety Report 7432014-1 (Version None)
Quarter: 2011Q2

REPORT INFORMATION
  Report Type: 
  Country: None (occurrence: None)
  Receive Date: 20110419
  Receipt Date: 20110419
  Transmission Date: 20111010
  Serious: Yes (Death)
  Sender: FDA-Public Use
  Company Number: None

PATIENT
  Age: 60 Year
  Sex: Male
  Weight: 103.4201 kg

DRUGS (1)
  1. METFORMIN HCL [Suspect]
     Indication: DIABETES MELLITUS
     Dosage: 500 MG BID PO
     Route: 048

REACTIONS (6)
  - COUGH [None]
  - VOMITING [None]
  - DIARRHOEA [None]
  - PYREXIA [None]
  - NAUSEA [None]
  - OROPHARYNGEAL PAIN [None]
